FAERS Safety Report 7828017-5 (Version None)
Quarter: 2011Q4

REPORT INFORMATION
  Report Type: 
  Country: None (occurrence: None)
  Receive Date: 20111020
  Receipt Date: 20110621
  Transmission Date: 20120403
  Serious: Yes (Hospitalization, Other)
  Sender: FDA-Public Use
  Company Number: CA-GLAXOSMITHKLINE-A0932082A

PATIENT
  Sex: Female
  Weight: 65.9 kg

DRUGS (4)
  1. ALBUTEROL [Concomitant]
     Dosage: 100MCG AS REQUIRED
     Route: 065
  2. SPIRIVA [Concomitant]
     Route: 065
  3. ESOMEPRAZOLE MAGNESIUM [Concomitant]
     Indication: HYPERCHLORHYDRIA
     Dosage: 40MG AS REQUIRED
     Route: 065
  4. ADVAIR DISKUS 100/50 [Suspect]
     Indication: CHRONIC OBSTRUCTIVE PULMONARY DISEASE
     Dosage: 1PUFF TWICE PER DAY
     Route: 055
     Dates: start: 20070101

REACTIONS (5)
  - INFLUENZA [None]
  - NASOPHARYNGITIS [None]
  - PNEUMONIA [None]
  - DYSPHONIA [None]
  - LOWER RESPIRATORY TRACT INFECTION [None]
